FAERS Safety Report 5442452-4 (Version None)
Quarter: 2007Q3

REPORT INFORMATION
  Report Type: 
  Country: None (occurrence: None)
  Receive Date: 20070830
  Receipt Date: 20070821
  Transmission Date: 20080115
  Serious: Yes (Hospitalization)
  Sender: FDA-Public Use
  Company Number: 2007US002008

PATIENT
  Age: 34 Year
  Sex: Female

DRUGS (17)
  1. PROGRAF [Suspect]
     Indication: PROPHYLAXIS AGAINST TRANSPLANT REJECTION
     Dosage: 2.5 MG, UID/QD, ORAL ; 3.5 MG, UID/QD, ORAL ; 5 MG, UID/QD, ORAL
     Route: 048
     Dates: start: 20051104, end: 20051117
  2. PROGRAF [Suspect]
     Indication: PROPHYLAXIS AGAINST TRANSPLANT REJECTION
     Dosage: 2.5 MG, UID/QD, ORAL ; 3.5 MG, UID/QD, ORAL ; 5 MG, UID/QD, ORAL
     Route: 048
     Dates: start: 20051117, end: 20051118
  3. PROGRAF [Suspect]
     Indication: PROPHYLAXIS AGAINST TRANSPLANT REJECTION
     Dosage: 2.5 MG, UID/QD, ORAL ; 3.5 MG, UID/QD, ORAL ; 5 MG, UID/QD, ORAL
     Route: 048
     Dates: start: 20051118
  4. PREDNISONE TAB [Concomitant]
  5. AZATHIOPRINE [Concomitant]
  6. VALGANCICLOVIR HCL [Concomitant]
  7. NYSTATIN [Concomitant]
  8. PANTOPRAZOLE SODIUM [Concomitant]
  9. CALCIUM CARBONATE [Concomitant]
  10. CALCITRIOL [Concomitant]
  11. METOCLOPRAMIDE HYDROCHLORIDE [Concomitant]
  12. MAGNESIUM OXIDE (MAGNESIUM OXIDE) [Concomitant]
  13. SULFAMETHOXAZOLE AND TRIMETHOPRIM [Concomitant]
  14. MULTIVITAMIN [Concomitant]
  15. MORPHINE SULFATE [Concomitant]
  16. METRONIDAZOLE (METRONIDAZOLE SODIUM) [Concomitant]
  17. ZOLPIDEM TARTRATE [Concomitant]

REACTIONS (1)
  - LUNG TRANSPLANT REJECTION [None]
